FAERS Safety Report 4494260-9 (Version None)
Quarter: 2004Q4

REPORT INFORMATION
  Report Type: 
  Country: None (occurrence: None)
  Receive Date: 20041105
  Receipt Date: 20041029
  Transmission Date: 20050328
  Serious: Yes (Other)
  Sender: FDA-Public Use
  Company Number: PHNU2004DE03686

PATIENT
  Sex: Female

DRUGS (3)
  1. LEPONEX / CLOZARIL (CLOZAPINE) [Suspect]
     Indication: MEDICATION ERROR
     Dosage: 150 MG, ONCE/SINGLE
     Route: 048
     Dates: start: 20041029, end: 20041029
  2. FLUOXETINE HCL [Concomitant]
     Dosage: UNKNOWN
     Route: 048
  3. MELPERONE [Concomitant]
     Dosage: UNKNOWN
     Route: 048

REACTIONS (2)
  - HYPERTENSION [None]
  - MEDICATION ERROR [None]
